FAERS Safety Report 4481454-1 (Version None)
Quarter: 2004Q3

REPORT INFORMATION
  Report Type: 
  Country: None (occurrence: None)
  Receive Date: 20040923
  Receipt Date: 20040611
  Transmission Date: 20050211
  Serious: No
  Sender: FDA-Public Use
  Company Number: USA040669892

PATIENT
  Age: 52 Year
  Sex: Male
  Weight: 85 kg

DRUGS (5)
  1. FORTEO [Suspect]
     Indication: OSTEOPOROSIS
     Dosage: 20 UG/1 DAY
     Dates: start: 20030801
  2. FOSAMAX [Concomitant]
  3. MULTI-VITAMIN [Concomitant]
  4. CITRACAL (CALCIUM CITRATE) [Concomitant]
  5. VIOXX [Concomitant]

REACTIONS (3)
  - CHILLS [None]
  - FEELING COLD [None]
  - VERTIGO [None]
